FAERS Safety Report 5597861-X (Version None)
Quarter: 2007Q4

REPORT INFORMATION
  Report Type: 
  Country: None (occurrence: None)
  Receive Date: 20071221
  Receipt Date: 20070925
  Transmission Date: 20080405
  Serious: No
  Sender: FDA-Public Use
  Company Number: US200709005937

PATIENT
  Age: 67 Year
  Sex: Female

DRUGS (1)
  1. HUMULIN N [Suspect]
     Indication: DIABETES MELLITUS

REACTIONS (1)
  - BLOOD GLUCOSE DECREASED [None]
